FAERS Safety Report 8638493 (Version 6)
Quarter: 2013Q2

REPORT INFORMATION
  Report Type: Report from Study
  Country: JP (occurrence: JP)
  Receive Date: 20120627
  Receipt Date: 20130606
  Transmission Date: 20140414
  Serious: Yes (Other)
  Sender: FDA-Public Use
  Company Number: JP-JNJFOC-20120611687

PATIENT
  Age: 58 Year
  Sex: Male
  Weight: 82 kg

DRUGS (11)
  1. STELARA [Suspect]
     Indication: PSORIASIS
     Route: 058
     Dates: start: 20130522
  2. STELARA [Suspect]
     Indication: PSORIASIS
     Route: 058
     Dates: start: 20120509, end: 20120606
  3. ISCOTIN [Suspect]
     Indication: PROPHYLAXIS
     Route: 048
     Dates: start: 20120419, end: 20120606
  4. PYRIDOXAL PHOSPHATE [Suspect]
     Indication: PROPHYLAXIS
     Route: 048
     Dates: start: 20120419, end: 20120606
  5. RASILEZ [Concomitant]
     Indication: HYPERTENSION
     Route: 048
  6. OLMETEC [Concomitant]
     Indication: HYPERTENSION
     Route: 048
  7. NATRIX [Concomitant]
     Indication: HYPERTENSION
     Route: 048
  8. LOCOID [Concomitant]
     Indication: PSORIASIS
     Route: 061
  9. OXAROL [Concomitant]
     Indication: PSORIASIS
     Route: 061
  10. PROPETO [Concomitant]
     Indication: PSORIASIS
     Route: 061
  11. MYSER [Concomitant]
     Indication: PSORIASIS
     Route: 061

REACTIONS (3)
  - Hepatic function abnormal [Recovering/Resolving]
  - Pyrexia [Recovering/Resolving]
  - Rhinorrhoea [Recovering/Resolving]
